FAERS Safety Report 6313971-3 (Version None)
Quarter: 2009Q3

REPORT INFORMATION
  Report Type: 
  Country: None (occurrence: None)
  Receive Date: 20090818
  Receipt Date: 20090808
  Transmission Date: 20100115
  Serious: Yes (Other)
  Sender: FDA-Public Use
  Company Number: PHHY2009DE33462

PATIENT
  Sex: Female

DRUGS (1)
  1. FEMARA [Suspect]
     Indication: BREAST CANCER
     Dosage: UNK
     Route: 048
     Dates: start: 20060501

REACTIONS (2)
  - PHOTOPSIA [None]
  - RETINAL DETACHMENT [None]
